FAERS Safety Report 17284223 (Version 1)
Quarter: 2020Q1

REPORT INFORMATION
  Report Type: Report from Study
  Country: CA (occurrence: CA)
  Receive Date: 20200117
  Receipt Date: 20200117
  Transmission Date: 20200409
  Serious: Yes (Other)
  Sender: FDA-Public Use
  Company Number: PHHY2016CA158001

PATIENT
  Age: 36 Year
  Sex: Female

DRUGS (5)
  1. JADENU [Suspect]
     Active Substance: DEFERASIROX
     Indication: IRON OVERLOAD
     Dosage: 720 MG, QD
     Route: 048
     Dates: start: 20161001
  2. DESFERAL [Suspect]
     Active Substance: DEFEROXAMINE MESYLATE
     Indication: IRON OVERLOAD
     Dosage: (SUBCUTANEOUS)
     Route: 042
  3. JADENU [Suspect]
     Active Substance: DEFERASIROX
     Dosage: 360 MG, QD (FOR TWO DAYS)
     Route: 048
  4. FOLIC ACID. [Concomitant]
     Active Substance: FOLIC ACID
     Indication: PRODUCT USED FOR UNKNOWN INDICATION
     Route: 065
  5. VITAMIN D [Concomitant]
     Active Substance: VITAMIN D NOS
     Indication: PRODUCT USED FOR UNKNOWN INDICATION
     Route: 065

REACTIONS (14)
  - Pericardial effusion [Unknown]
  - Nausea [Unknown]
  - Stroke volume increased [Unknown]
  - Visual impairment [Unknown]
  - White blood cell count decreased [Unknown]
  - Left ventricular dilatation [Unknown]
  - Left ventricular end-diastolic pressure increased [Unknown]
  - Splenomegaly [Unknown]
  - Product use issue [Unknown]
  - Serum ferritin increased [Recovering/Resolving]
  - Infusion site pain [Unknown]
  - Bundle branch block left [Unknown]
  - Haemoglobin decreased [Unknown]
  - Vomiting [Unknown]

NARRATIVE: CASE EVENT DATE: 2016
